FAERS Safety Report 15638688 (Version 1)
Quarter: 2018Q4

REPORT INFORMATION
  Report Type: Spontaneous
  Country: US (occurrence: US)
  Receive Date: 20181120
  Receipt Date: 20181120
  Transmission Date: 20190205
  Serious: No
  Sender: FDA-Public Use
  Company Number: US-JNJFOC-20180220438

PATIENT
  Sex: Female
  Weight: 64 kg

DRUGS (15)
  1. GLIPIZIDE. [Concomitant]
     Active Substance: GLIPIZIDE
  2. COQ10 [Concomitant]
     Active Substance: UBIDECARENONE
  3. METFORMIN [Concomitant]
     Active Substance: METFORMIN HYDROCHLORIDE
  4. OMEPRAZOLE. [Concomitant]
     Active Substance: OMEPRAZOLE
  5. ESTROGEL [Concomitant]
     Active Substance: ESTRADIOL
  6. ASCORBIC ACID. [Concomitant]
     Active Substance: ASCORBIC ACID
  7. ASPIRIN. [Concomitant]
     Active Substance: ASPIRIN
  8. LEVOTHYROXINE. [Concomitant]
     Active Substance: LEVOTHYROXINE
  9. MULTI VITAMIN [Concomitant]
     Active Substance: VITAMINS
  10. TEMAZEPAM. [Concomitant]
     Active Substance: TEMAZEPAM
  11. IMBRUVICA [Suspect]
     Active Substance: IBRUTINIB
     Indication: EXTRANODAL MARGINAL ZONE B-CELL LYMPHOMA (MALT TYPE)
     Route: 048
     Dates: start: 20171221
  12. LISINOPRIL. [Concomitant]
     Active Substance: LISINOPRIL
  13. METOPROLOL. [Concomitant]
     Active Substance: METOPROLOL
  14. ATORVASTATIN [Concomitant]
     Active Substance: ATORVASTATIN
  15. HYDROCHLOROTHIAZIDE WITH TRIAMTERENE [Concomitant]
     Active Substance: HYDROCHLOROTHIAZIDE\TRIAMTERENE

REACTIONS (1)
  - Infection [Unknown]
